FAERS Safety Report 9525217 (Version 3)
Quarter: 2013Q4

REPORT INFORMATION
  Report Type: Spontaneous
  Country: IR (occurrence: IR)
  Receive Date: 20130916
  Receipt Date: 20131101
  Transmission Date: 20140711
  Serious: Yes (Other)
  Sender: FDA-Public Use
  Company Number: IR-NOVOPROD-387243

PATIENT
  Age: 60 Year
  Sex: Male
  Weight: 70 kg

DRUGS (6)
  1. NOVOMIX 30 FLEXPEN [Suspect]
     Indication: TYPE 2 DIABETES MELLITUS
     Dosage: 40IU (20 IU IN THE MORNING 20 IU AT NOON)
     Route: 065
  2. NOVOMIX 30 FLEXPEN [Suspect]
     Dosage: 20 IU, QD (IN THE MORNING)
     Route: 065
  3. RANITIDINE [Concomitant]
     Dosage: UNK, BID
  4. NITROGLYCERIN [Concomitant]
     Dosage: UNK, BID
  5. ASP [Concomitant]
     Dosage: UNK, SINGLE
  6. METORAL [Concomitant]
     Dosage: (HALF TABLET), BID

REACTIONS (3)
  - Chest pain [Recovered/Resolved]
  - Pain in extremity [Recovered/Resolved]
  - Hypoglycaemia [Recovered/Resolved]
